FAERS Safety Report 6371543-9 (Version None)
Quarter: 2009Q3

REPORT INFORMATION
  Report Type: 
  Country: None (occurrence: None)
  Receive Date: 20090923
  Receipt Date: 20070810
  Transmission Date: 20100115
  Serious: Yes (Other)
  Sender: FDA-Public Use
  Company Number: US-ASTRAZENECA-2007UW24463

PATIENT
  Age: 36 Year
  Sex: Male
  Weight: 74.4 kg

DRUGS (9)
  1. SEROQUEL [Suspect]
     Indication: BIPOLAR DISORDER
     Dosage: 25 MG - 200 MG
     Route: 048
     Dates: start: 20040901
  2. SEROQUEL [Suspect]
     Dosage: 25 MG - 300 MG
     Route: 048
     Dates: start: 20040920
  3. RISPERDAL [Concomitant]
     Dosage: 2 MG - 4 MG
     Route: 048
     Dates: start: 19970101
  4. LEXAPRO [Concomitant]
     Route: 048
     Dates: start: 20040129
  5. LAMICTAL [Concomitant]
     Dosage: 25 - 100 MG
     Route: 048
     Dates: start: 20000111
  6. FLEXERIL [Concomitant]
     Route: 048
  7. MORPHINE [Concomitant]
     Route: 048
     Dates: start: 20051001
  8. TOPAMAX [Concomitant]
     Route: 048
     Dates: start: 20030503
  9. NEXIUM [Concomitant]
     Indication: DYSPEPSIA
     Route: 048
     Dates: start: 20021230

REACTIONS (3)
  - DIABETES MELLITUS [None]
  - HYPERGLYCAEMIA [None]
  - PANCREATITIS [None]
